FAERS Safety Report 9767167 (Version 1)
Quarter: 2013Q4

REPORT INFORMATION
  Report Type: Spontaneous
  Country: CA (occurrence: CA)
  Receive Date: 20131217
  Receipt Date: 20131217
  Transmission Date: 20140711
  Serious: Yes (Other)
  Sender: FDA-Public Use
  Company Number: CA-B.I. PHARMACEUTICALS,INC./RIDGEFIELD-2013-BI-40276CN

PATIENT
  Age: 64 Year
  Sex: Male
  Weight: 93 kg

DRUGS (5)
  1. PRADAXA [Suspect]
     Route: 065
  2. REMICADE [Suspect]
     Dosage: 10 MG/KG
     Route: 042
  3. ASA [Concomitant]
  4. IMURAN [Concomitant]
  5. MULTIVITAMINE(S) [Concomitant]

REACTIONS (2)
  - Blood iron decreased [Recovered/Resolved]
  - Haemoglobin decreased [Recovered/Resolved]
